FAERS Safety Report 14648318 (Version 1)
Quarter: 2018Q1

REPORT INFORMATION
  Report Type: Spontaneous
  Country: FR (occurrence: FR)
  Receive Date: 20180316
  Receipt Date: 20180316
  Transmission Date: 20180509
  Serious: Yes (Life-Threatening)
  Sender: FDA-Public Use
  Company Number: FR-PFIZER INC-2018107282

PATIENT
  Age: 34 Year
  Sex: Female

DRUGS (4)
  1. ATRACURIUM BESILATE [Suspect]
     Active Substance: ATRACURIUM BESYLATE
     Indication: ANAESTHESIA
     Dosage: UNK
     Route: 042
     Dates: start: 20161207, end: 20161207
  2. PROPOFOL. [Suspect]
     Active Substance: PROPOFOL
     Indication: ANAESTHESIA
     Dosage: UNK
     Route: 042
     Dates: start: 20161207, end: 20161207
  3. SUFENTANIL [Suspect]
     Active Substance: SUFENTANIL
     Indication: ANAESTHESIA
     Dosage: UNK
     Route: 042
     Dates: start: 20161207, end: 20161207
  4. SUXAMETHONIUM CHLORIDE DIHYDRATE [Suspect]
     Active Substance: SUCCINYLCHOLINE CHLORIDE DIHYDRATE
     Indication: ANAESTHESIA
     Dosage: UNK
     Route: 042
     Dates: start: 20161207, end: 20161207

REACTIONS (2)
  - Tachycardia [Recovered/Resolved]
  - Bronchospasm [Recovered/Resolved]

NARRATIVE: CASE EVENT DATE: 20161207
